FAERS Safety Report 17163669 (Version 36)
Quarter: 2020Q3

REPORT INFORMATION
  Report Type: Other
  Country: DE (occurrence: DE)
  Receive Date: 20191217
  Receipt Date: 20200830
  Transmission Date: 20201102
  Serious: Yes (Other)
  Sender: FDA-Public Use
  Company Number: DE-ROCHE-2398329

PATIENT
  Age: 51 Year
  Sex: Female
  Weight: 63 kg

DRUGS (38)
  1. OCREVUS [Suspect]
     Active Substance: OCRELIZUMAB
     Indication: RHEUMATOID ARTHRITIS
     Route: 042
     Dates: start: 20181212
  2. SATIVEX [Concomitant]
     Active Substance: NABIXIMOLS
     Dosage: AS REQUIRED
     Route: 065
  3. VOLON A [Concomitant]
     Route: 037
     Dates: start: 20190911
  4. RAMIPRIL. [Concomitant]
     Active Substance: RAMIPRIL
     Dosage: IN THE EVENING
     Route: 065
  5. IBUPROFEN. [Concomitant]
     Active Substance: IBUPROFEN
     Dosage: AS REQUIRED
     Route: 065
  6. OVESTIN [Concomitant]
     Active Substance: ESTRIOL
     Dosage: CURRENTLY PAUSED
     Route: 065
  7. FOSFOMYCIN [Concomitant]
     Active Substance: FOSFOMYCIN
     Indication: URINARY TRACT INFECTION
     Route: 065
     Dates: start: 20181111
  8. OCREVUS [Suspect]
     Active Substance: OCRELIZUMAB
     Route: 042
     Dates: start: 20190606
  9. DOMPERIDON [Concomitant]
     Active Substance: DOMPERIDONE
     Dosage: AS REQUIRED
     Route: 065
  10. HEPARIN [Concomitant]
     Active Substance: HEPARIN SODIUM
     Dates: start: 20200618
  11. XIPAMIDE [Concomitant]
     Active Substance: XIPAMIDE
  12. VOLON A [Concomitant]
     Indication: MUSCLE SPASTICITY
     Dosage: ADMINISTERED INTO THE LIQUOR CEREBROSINALIS
     Route: 065
     Dates: end: 20181004
  13. VOLON A [Concomitant]
     Dosage: ADMINISTERD INTO THE LIQUOR CEREBROSPINALIS
     Route: 037
     Dates: start: 20200409
  14. RAMIPRIL. [Concomitant]
     Active Substance: RAMIPRIL
     Dosage: 1?0?1
     Route: 065
     Dates: start: 20190701
  15. PANTOPRAZOL [Concomitant]
     Active Substance: PANTOPRAZOLE SODIUM
     Dosage: AS REQUIRED
     Route: 065
  16. FOSFOMYCIN [Concomitant]
     Active Substance: FOSFOMYCIN
     Dosage: AS REQUIRED
     Route: 065
  17. CEFUROX [Concomitant]
     Active Substance: CEFUROXIME AXETIL
     Indication: NASOPHARYNGITIS
     Route: 065
     Dates: start: 20190227, end: 20190301
  18. FOLIC ACID. [Concomitant]
     Active Substance: FOLIC ACID
  19. OCREVUS [Suspect]
     Active Substance: OCRELIZUMAB
     Dosage: 5TH INFUSION
     Route: 042
     Dates: start: 20191205
  20. VOLON A [Concomitant]
     Dosage: ADMINISTERED INTO THE LIQUOR CEREBROSPINALIS
     Route: 065
     Dates: start: 20190626, end: 20190626
  21. VOLON A [Concomitant]
     Dosage: ADMINISTERED INTO THE LIQUOR CEREBROSPINALIS
     Route: 065
     Dates: end: 201911
  22. FORMOLICH [Concomitant]
     Active Substance: FORMOTEROL FUMARATE
     Route: 065
  23. CORTISONE [Concomitant]
     Active Substance: CORTISONE
     Route: 065
     Dates: start: 20190405
  24. DEKRISTOL [Concomitant]
     Active Substance: CHOLECALCIFEROL
     Dosage: 1 PER WEEK EVERY THREE MONTHS
     Route: 065
  25. NOVALGIN (METAMIZOLE SODIUM) [Concomitant]
     Active Substance: METAMIZOLE SODIUM
     Dosage: AS REQUIRED
     Route: 065
  26. PANTOPRAZOL [Concomitant]
     Active Substance: PANTOPRAZOLE SODIUM
     Route: 065
  27. CORTISONE [Concomitant]
     Active Substance: CORTISONE
     Route: 065
  28. VOLON A [Concomitant]
     Dosage: ADMINISTERED INTO THE LIQUOR CEREBROSINALIS
     Route: 065
     Dates: start: 20190403
  29. OCREVUS [Suspect]
     Active Substance: OCRELIZUMAB
     Indication: RELAPSING-REMITTING MULTIPLE SCLEROSIS
     Dosage: FREQUENCY DEVIATING FROM SPC
     Route: 042
     Dates: start: 20180523
  30. CORTISONE [Concomitant]
     Active Substance: CORTISONE
     Indication: PREMEDICATION
     Route: 065
  31. OCREVUS [Suspect]
     Active Substance: OCRELIZUMAB
     Dosage: FREQUENCY WAS 182 DAYS
     Route: 042
     Dates: start: 20180523
  32. RAMIPRIL. [Concomitant]
     Active Substance: RAMIPRIL
     Dosage: AS REQUIRED
     Route: 065
  33. RAMIPRIL. [Concomitant]
     Active Substance: RAMIPRIL
     Route: 065
  34. D?MANNOSE [Concomitant]
     Route: 065
  35. SALBUTAMOL [Concomitant]
     Active Substance: ALBUTEROL
     Dosage: AS REQUIRED
     Route: 065
  36. INFLUENZA VACCINE [Concomitant]
     Active Substance: INFLUENZA VIRUS VACCINE
     Indication: PRODUCT USED FOR UNKNOWN INDICATION
     Route: 065
     Dates: start: 20181018, end: 20181018
  37. NITROFURANTOIN. [Concomitant]
     Active Substance: NITROFURANTOIN
     Indication: PRODUCT USED FOR UNKNOWN INDICATION
     Route: 065
  38. EUSAPRIM [Concomitant]
     Active Substance: SULFAMETHOXAZOLE\TRIMETHOPRIM
     Route: 065

REACTIONS (60)
  - Paraesthesia [Not Recovered/Not Resolved]
  - Eyelid ptosis [Recovered/Resolved]
  - Weight increased [Not Recovered/Not Resolved]
  - Paraesthesia [Not Recovered/Not Resolved]
  - Periorbital swelling [Recovered/Resolved]
  - Dyspepsia [Recovered/Resolved]
  - Chills [Recovered/Resolved]
  - Low density lipoprotein increased [Not Recovered/Not Resolved]
  - Anal incontinence [Recovered/Resolved]
  - Dysstasia [Not Recovered/Not Resolved]
  - Insomnia [Not Recovered/Not Resolved]
  - Urinary tract infection bacterial [Recovered/Resolved]
  - Fracture [Recovered/Resolved]
  - Vision blurred [Not Recovered/Not Resolved]
  - Throat irritation [Recovered/Resolved]
  - Inappropriate affect [Recovered/Resolved]
  - Back pain [Not Recovered/Not Resolved]
  - Seborrhoeic keratosis [Not Recovered/Not Resolved]
  - Abdominal distension [Recovered/Resolved]
  - Depression [Recovered/Resolved]
  - Muscular weakness [Not Recovered/Not Resolved]
  - Cystitis noninfective [Unknown]
  - Influenza like illness [Recovered/Resolved]
  - Muscle spasticity [Not Recovered/Not Resolved]
  - Osteoporosis [Not Recovered/Not Resolved]
  - Sensation of foreign body [Recovered/Resolved]
  - Fall [Unknown]
  - Blood pressure increased [Recovering/Resolving]
  - Initial insomnia [Not Recovered/Not Resolved]
  - Irritability [Not Recovered/Not Resolved]
  - Periorbital swelling [Not Recovered/Not Resolved]
  - Listless [Recovered/Resolved]
  - Constipation [Recovered/Resolved]
  - Vitamin D decreased [Not Recovered/Not Resolved]
  - Body fat disorder [Not Recovered/Not Resolved]
  - Migraine [Not Recovered/Not Resolved]
  - Vulvovaginal dryness [Unknown]
  - Fatigue [Recovered/Resolved]
  - Meningism [Recovered/Resolved]
  - Ligament sprain [Recovered/Resolved]
  - Fluid retention [Not Recovered/Not Resolved]
  - Dry skin [Recovered/Resolved]
  - Muscular weakness [Recovered/Resolved]
  - Pain [Recovered/Resolved]
  - Oral herpes [Recovered/Resolved]
  - Visual impairment [Not Recovered/Not Resolved]
  - Anal inflammation [Recovered/Resolved]
  - Cardiac failure [Not Recovered/Not Resolved]
  - Anal incontinence [Recovered/Resolved]
  - Oedema [Recovered/Resolved]
  - Initial insomnia [Not Recovered/Not Resolved]
  - Chronic gastritis [Not Recovered/Not Resolved]
  - Oral discomfort [Recovered/Resolved]
  - Asthenia [Not Recovered/Not Resolved]
  - Blood cholesterol increased [Not Recovered/Not Resolved]
  - Bone pain [Not Recovered/Not Resolved]
  - Alopecia [Not Recovered/Not Resolved]
  - Bone density increased [Not Recovered/Not Resolved]
  - Illness [Recovered/Resolved]
  - Depressed mood [Recovered/Resolved]

NARRATIVE: CASE EVENT DATE: 20180523
